FAERS Safety Report 12313360 (Version 2)
Quarter: 2016Q2

REPORT INFORMATION
  Report Type: Spontaneous
  Country: US (occurrence: US)
  Receive Date: 20160428
  Receipt Date: 20160503
  Transmission Date: 20160815
  Serious: Yes (Other)
  Sender: FDA-Public Use
  Company Number: US-PFIZER INC-2016229969

PATIENT
  Sex: Male

DRUGS (1)
  1. CELEBREX [Suspect]
     Active Substance: CELECOXIB
     Indication: ARTHRITIS
     Dosage: UNK

REACTIONS (7)
  - Cough [Unknown]
  - Weight fluctuation [Unknown]
  - Joint swelling [Unknown]
  - Peripheral swelling [Unknown]
  - Wheezing [Unknown]
  - Fluid retention [Unknown]
  - Cerebrovascular accident [Unknown]

NARRATIVE: CASE EVENT DATE: 20160212
